FAERS Safety Report 10860794 (Version 6)
Quarter: 2016Q1

REPORT INFORMATION
  Report Type: Report from Study
  Country: DE (occurrence: DE)
  Receive Date: 20150224
  Receipt Date: 20160302
  Transmission Date: 20160525
  Serious: Yes (Hospitalization, Disabling)
  Sender: FDA-Public Use
  Company Number: DE-ROCHE-1542796

PATIENT
  Age: 86 Year
  Sex: Male
  Weight: 64 kg

DRUGS (4)
  1. RANIBIZUMAB [Suspect]
     Active Substance: RANIBIZUMAB
     Indication: NEOVASCULAR AGE-RELATED MACULAR DEGENERATION
     Route: 050
     Dates: start: 20090815
  2. RANIBIZUMAB [Suspect]
     Active Substance: RANIBIZUMAB
     Indication: RETINAL CYST
     Dosage: SINGLE DOSE RECEIVED
     Route: 050
     Dates: start: 20140226, end: 20140226
  3. RANIBIZUMAB [Suspect]
     Active Substance: RANIBIZUMAB
     Indication: RETINAL HAEMORRHAGE
     Route: 050
     Dates: start: 20140929
  4. RANIBIZUMAB [Suspect]
     Active Substance: RANIBIZUMAB
     Indication: SUBRETINAL FLUID
     Route: 050
     Dates: start: 201407

REACTIONS (5)
  - Retinal haemorrhage [Not Recovered/Not Resolved]
  - Visual acuity reduced [Not Recovered/Not Resolved]
  - Incorrect dose administered [Unknown]
  - Retinal haemorrhage [Not Recovered/Not Resolved]
  - Metamorphopsia [Unknown]

NARRATIVE: CASE EVENT DATE: 201401
